FAERS Safety Report 7978207-6 (Version None)
Quarter: 2011Q4

REPORT INFORMATION
  Report Type: 
  Country: None (occurrence: None)
  Receive Date: 20111129
  Receipt Date: 20110923
  Transmission Date: 20120403
  Serious: No
  Sender: FDA-Public Use
  Company Number: PHHY2011US67927

PATIENT
  Age: 46 Year
  Sex: Male

DRUGS (1)
  1. AFINITOR [Suspect]
     Dosage: 10 MG, DAILY, ORAL
     Route: 048
     Dates: end: 20110718

REACTIONS (4)
  - HEADACHE [None]
  - PAIN IN EXTREMITY [None]
  - BLISTER [None]
  - BOWEL MOVEMENT IRREGULARITY [None]
